FAERS Safety Report 8805466 (Version 1)
Quarter: 2012Q4

REPORT INFORMATION
  Report Type: Report from Study
  Country: US (occurrence: US)
  Receive Date: 20120924
  Receipt Date: 20120924
  Transmission Date: 20130627
  Serious: Yes (Other)
  Sender: FDA-Public Use
  Company Number: US-TEVA-359629USA

PATIENT
  Sex: Female

DRUGS (4)
  1. METHOTREXATE [Suspect]
     Dates: start: 20070710
  2. ABATACEPT [Suspect]
     Indication: RHEUMATOID ARTHRITIS
     Dosage: One day
     Route: 058
     Dates: start: 20120202, end: 20120202
  3. MOBIC [Concomitant]
     Dates: start: 20120313
  4. FOLIC ACID [Concomitant]
     Dates: start: 20060216

REACTIONS (1)
  - Squamous cell carcinoma [Recovered/Resolved]
